FAERS Safety Report 8021498-6 (Version None)
Quarter: 2011Q4

REPORT INFORMATION
  Report Type: 
  Country: None (occurrence: None)
  Receive Date: 20111230
  Receipt Date: 20111230
  Transmission Date: 20120403
  Serious: Yes (Hospitalization)
  Sender: FDA-Public Use
  Company Number: None

PATIENT
  Age: 56 Year
  Sex: Female
  Weight: 92.6 kg

DRUGS (3)
  1. PACLITAXEL [Suspect]
     Indication: BREAST CANCER
     Dosage: 70MG/M2 IV, WEEK
     Route: 042
     Dates: start: 20111003
  2. RAD001/PLACEBO [Suspect]
     Indication: BREAST CANCER
     Dosage: 5MG PO DAILY
     Route: 048
     Dates: start: 20111003
  3. CISPLATIN [Suspect]
     Indication: BREAST CANCER
     Dosage: 20MG/M2  IV, WEEK
     Dates: start: 20111003

REACTIONS (2)
  - PNEUMONIA [None]
  - SPUTUM DISCOLOURED [None]
